FAERS Safety Report 4930964-9 (Version None)
Quarter: 2006Q1

REPORT INFORMATION
  Report Type: 
  Country: None (occurrence: None)
  Receive Date: 20060227
  Receipt Date: 20060112
  Transmission Date: 20060701
  Serious: Yes (Hospitalization)
  Sender: FDA-Public Use
  Company Number: BR-2005-024103

PATIENT
  Age: 49 Year
  Sex: Female

DRUGS (4)
  1. BETAFERON (INTERFERON BETA - 1B) INJECTION, 250UG [Suspect]
     Indication: MULTIPLE SCLEROSIS
     Dosage: 8 MIU, SUBCUTANEOUS
     Route: 058
     Dates: start: 20050923
  2. NEURONTIN [Concomitant]
  3. SERENATA (SERTRALINE) [Concomitant]
  4. TYLENOL (CAPLET) [Concomitant]

REACTIONS (11)
  - BURNING SENSATION [None]
  - DIFFICULTY IN WALKING [None]
  - DRUG ADMINISTRATION ERROR [None]
  - GROIN PAIN [None]
  - HAEMATOMA [None]
  - HEADACHE [None]
  - HYPOAESTHESIA [None]
  - INFLUENZA LIKE ILLNESS [None]
  - INJECTION SITE BRUISING [None]
  - INJECTION SITE ERYTHEMA [None]
  - PAIN IN EXTREMITY [None]
